FAERS Safety Report 10670827 (Version 5)
Quarter: 2016Q1

REPORT INFORMATION
  Report Type: Spontaneous
  Country: US (occurrence: US)
  Receive Date: 20141223
  Receipt Date: 20160323
  Transmission Date: 20160525
  Serious: Yes (Other)
  Sender: FDA-Public Use
  Company Number: US-PFIZER INC-2014352469

PATIENT
  Age: 56 Year
  Sex: Female
  Weight: 106.58 kg

DRUGS (3)
  1. AROMASIN [Suspect]
     Active Substance: EXEMESTANE
     Indication: PROPHYLACTIC CHEMOTHERAPY
     Dosage: 25 MG, 1X/DAY
     Route: 048
  2. AROMASIN [Suspect]
     Active Substance: EXEMESTANE
     Indication: BREAST DYSPLASIA
     Dosage: 25 MG, DAILY
     Route: 048
  3. LOTREL [Concomitant]
     Active Substance: AMLODIPINE BESYLATE\BENAZEPRIL HYDROCHLORIDE
     Indication: BLOOD PRESSURE ABNORMAL
     Dosage: 5-10 MG, UNK

REACTIONS (7)
  - Diabetes mellitus [Unknown]
  - Hot flush [Not Recovered/Not Resolved]
  - Bone disorder [Not Recovered/Not Resolved]
  - Polyp [Not Recovered/Not Resolved]
  - Hypersomnia [Unknown]
  - Product use issue [Unknown]
  - Night sweats [Not Recovered/Not Resolved]

NARRATIVE: CASE EVENT DATE: 2015
